FAERS Safety Report 4578644-6 (Version None)
Quarter: 2005Q1

REPORT INFORMATION
  Report Type: 
  Country: None (occurrence: None)
  Receive Date: 20050209
  Receipt Date: 20050209
  Transmission Date: 20050727
  Serious: Yes (Hospitalization)
  Sender: FDA-Public Use
  Company Number: None

PATIENT
  Sex: Male
  Weight: 78.4723 kg

DRUGS (8)
  1. IRESSA [Suspect]
     Indication: ADENOCARCINOMA PANCREAS
     Dosage: 250 MG    DAILY   ORAL
     Route: 048
     Dates: start: 20041111, end: 20050125
  2. ENSURE PLUS [Concomitant]
  3. ATENOLOL [Concomitant]
  4. PROCHLORPERAZINE MALEATE [Concomitant]
  5. ATROPOINE 0.025/DIPHENOXYLATE 2.5 MG [Concomitant]
  6. CHOLESTYRAMINE [Concomitant]
  7. CLOTRIMAZOLE [Concomitant]
  8. LORAZEPAM [Concomitant]

REACTIONS (8)
  - BLOOD ALBUMIN DECREASED [None]
  - COUGH [None]
  - DUODENAL ULCER [None]
  - DYSPNOEA [None]
  - INTESTINAL OBSTRUCTION [None]
  - MEGACOLON [None]
  - METASTASES TO LIVER [None]
  - OEDEMA PERIPHERAL [None]
